FAERS Safety Report 4531069-1 (Version None)
Quarter: 2004Q4

REPORT INFORMATION
  Report Type: 
  Country: None (occurrence: None)
  Receive Date: 20041206
  Receipt Date: 20040830
  Transmission Date: 20050328
  Serious: No
  Sender: FDA-Public Use
  Company Number: USA040876853

PATIENT
  Age: 45 Year
  Sex: Female

DRUGS (3)
  1. CYMBALTA [Suspect]
     Indication: DEPRESSION
     Dosage: 60 MG DAY
     Dates: start: 20040801, end: 20040801
  2. HYDROCHLOROTHIAZIDE [Concomitant]
  3. RETIN A (TRETINOIN) [Concomitant]

REACTIONS (5)
  - BACK PAIN [None]
  - HOT FLUSH [None]
  - HYPERHIDROSIS [None]
  - NECK PAIN [None]
  - PAIN [None]
